FAERS Safety Report 7325294-4 (Version None)
Quarter: 2011Q1

REPORT INFORMATION
  Report Type: 
  Country: None (occurrence: None)
  Receive Date: 20110302
  Receipt Date: 20100618
  Transmission Date: 20110831
  Serious: Yes (Hospitalization, Other)
  Sender: FDA-Public Use
  Company Number: US-BAYER-201011963NA

PATIENT
  Sex: Female
  Weight: 61.224 kg

DRUGS (4)
  1. YASMIN [Suspect]
     Indication: ACNE
     Dosage: 1 DF (DAILY DOSE), QD, ORAL
     Route: 048
     Dates: start: 20040701, end: 20041101
  2. YASMIN [Suspect]
     Indication: PREMENSTRUAL SYNDROME
  3. ASPIRIN [Concomitant]
     Dosage: UNK
     Dates: start: 20040101, end: 20100101
  4. YAZ [Suspect]
     Dosage: 1 DF (DAILY DOSE), QD, ORAL
     Route: 048
     Dates: start: 20040801

REACTIONS (8)
  - DEEP VEIN THROMBOSIS [None]
  - PULMONARY EMBOLISM [None]
  - INJURY [None]
  - COUGH [None]
  - INFERTILITY FEMALE [None]
  - DYSPNOEA [None]
  - MENTAL DISORDER [None]
  - PAIN IN EXTREMITY [None]
